FAERS Safety Report 7071181-9 (Version None)
Quarter: 2010Q4

REPORT INFORMATION
  Report Type: 
  Country: None (occurrence: None)
  Receive Date: 20101027
  Receipt Date: 20101027
  Transmission Date: 20110411
  Serious: Yes (Other)
  Sender: FDA-Public Use
  Company Number: None

PATIENT
  Sex: Female
  Weight: 88 kg

DRUGS (3)
  1. GEMZAR [Suspect]
     Indication: PANCREATIC CARCINOMA METASTATIC
     Dosage: 1970 MG GEMZAR WEEKLY IV INFUSION - 042
     Route: 042
     Dates: start: 20101006
  2. GEMZAR [Suspect]
     Indication: PANCREATIC CARCINOMA METASTATIC
     Dosage: 1970 MG GEMZAR WEEKLY IV INFUSION - 042
     Route: 042
     Dates: start: 20101012
  3. PAZOPANIB 200MG TABLETS GLAXO SMITH KLINE [Suspect]
     Dosage: 800 MG PAZOPANIB DAILY PO - 047
     Route: 048
     Dates: start: 20101006, end: 20101015

REACTIONS (3)
  - NEUTROPENIA [None]
  - THROMBOCYTOPENIA [None]
  - URINARY TRACT INFECTION [None]
